FAERS Safety Report 21273585 (Version 2)
Quarter: 2022Q4

REPORT INFORMATION
  Report Type: Report from Study
  Country: FR (occurrence: None)
  Receive Date: 20220831
  Receipt Date: 20221012
  Transmission Date: 20230113
  Serious: Yes (Death, Hospitalization)
  Sender: FDA-Public Use
  Company Number: 2022A297678

PATIENT
  Age: 877 Month
  Sex: Male
  Weight: 82 kg

DRUGS (4)
  1. EVUSHELD [Suspect]
     Active Substance: CILGAVIMAB\TIXAGEVIMAB
     Indication: COVID-19 prophylaxis
     Dosage: 150 MG/ 150 MG, ONCE/SINGLE ADMINISTRATION
     Route: 030
     Dates: start: 20220104
  2. EVUSHELD [Suspect]
     Active Substance: CILGAVIMAB\TIXAGEVIMAB
     Indication: COVID-19 prophylaxis
     Dosage: 150 MG/ 150 MG, ONCE/SINGLE ADMINISTRATION
     Route: 030
     Dates: start: 20220429
  3. RITUXIMAB [Concomitant]
     Active Substance: RITUXIMAB
     Indication: Immunosuppressant drug therapy
  4. PREDNISONE [Concomitant]
     Active Substance: PREDNISONE
     Indication: Immunosuppressant drug therapy

REACTIONS (5)
  - Escherichia infection [Fatal]
  - COVID-19 pneumonia [Fatal]
  - Respiratory failure [Fatal]
  - Respiratory distress [Fatal]
  - Product use issue [Unknown]

NARRATIVE: CASE EVENT DATE: 20220104
